FAERS Safety Report 23737218 (Version 2)
Quarter: 2024Q2

REPORT INFORMATION
  Report Type: Report from Study
  Country: CA (occurrence: CA)
  Receive Date: 20240412
  Receipt Date: 20240509
  Transmission Date: 20240716
  Serious: Yes (Other)
  Sender: FDA-Public Use
  Company Number: CA-TAKEDA-2024TUS033527

PATIENT
  Age: 32 Year
  Sex: Female

DRUGS (5)
  1. VEDOLIZUMAB [Suspect]
     Active Substance: VEDOLIZUMAB
     Indication: Crohn^s disease
     Dosage: 300 MILLIGRAM
     Route: 042
     Dates: start: 20210715
  2. VEDOLIZUMAB [Suspect]
     Active Substance: VEDOLIZUMAB
     Dosage: 300 MILLIGRAM, Q4WEEKS
     Route: 042
     Dates: start: 20240503
  3. ENTOCORT [Concomitant]
     Active Substance: BUDESONIDE
     Indication: Muscle spasms
     Dosage: UNK
     Dates: start: 202106
  4. CALCIUM [Concomitant]
     Active Substance: CALCIUM
     Indication: Anaemia
     Dosage: 500 MILLIGRAM, QD
  5. IRON [Concomitant]
     Active Substance: IRON
     Indication: Anaemia
     Dosage: 600 MILLIGRAM, QD

REACTIONS (2)
  - Large intestinal stenosis [Unknown]
  - Off label use [Unknown]

NARRATIVE: CASE EVENT DATE: 20240503
